FAERS Safety Report 8330621-5 (Version None)
Quarter: 2012Q2

REPORT INFORMATION
  Report Type: 
  Country: None (occurrence: None)
  Receive Date: 20120502
  Receipt Date: 20120425
  Transmission Date: 20120825
  Serious: Yes (Hospitalization)
  Sender: FDA-Public Use
  Company Number: DE-ABBOTT-11P-062-0873912-00

PATIENT
  Sex: Male
  Weight: 88 kg

DRUGS (2)
  1. DICLOFENAC [Concomitant]
     Indication: PRODUCT USED FOR UNKNOWN INDICATION
  2. HUMIRA [Suspect]
     Indication: PSORIATIC ARTHROPATHY
     Route: 058
     Dates: start: 20080630, end: 20110801

REACTIONS (7)
  - INTERVERTEBRAL DISCITIS [None]
  - SEPSIS [None]
  - AORTIC ANEURYSM [None]
  - PSORIASIS [None]
  - CARDIAC VALVE DISEASE [None]
  - SEPTIC EMBOLUS [None]
  - ALPHA HAEMOLYTIC STREPTOCOCCAL INFECTION [None]
